FAERS Safety Report 5959595-9 (Version None)
Quarter: 2008Q4

REPORT INFORMATION
  Report Type: 
  Country: None (occurrence: None)
  Receive Date: 20081120
  Receipt Date: 20081028
  Transmission Date: 20090506
  Serious: Yes (Death)
  Sender: FDA-Public Use
  Company Number: GB-TEVA-175046ISR

PATIENT
  Age: 74 Year
  Sex: Male
  Weight: 90 kg

DRUGS (1)
  1. HALOPERIDOL [Suspect]
     Route: 048
     Dates: start: 20070123, end: 20070131

REACTIONS (4)
  - AGGRESSION [None]
  - BRONCHOPNEUMONIA [None]
  - DELIRIUM [None]
  - MUSCULOSKELETAL STIFFNESS [None]
